FAERS Safety Report 6059608-2 (Version None)
Quarter: 2009Q1

REPORT INFORMATION
  Report Type: 
  Country: None (occurrence: None)
  Receive Date: 20090128
  Receipt Date: 20090115
  Transmission Date: 20090719
  Serious: Yes (Hospitalization, Other)
  Sender: FDA-Public Use
  Company Number: 235339J08USA

PATIENT
  Age: 39 Year
  Sex: Female
  Weight: 100 kg

DRUGS (3)
  1. REBIF [Suspect]
     Indication: MULTIPLE SCLEROSIS
     Dosage: 44 MCG, 3 IN 1 WEEKS, SUBCUTANEOUS
     Route: 058
     Dates: start: 20070402, end: 20080521
  2. UNSPECIFIED MEDICATIONS (ALL OTHER THERAPEUTIC PRODUCTS) [Concomitant]
  3. LASIX (FUROSEMIDE /00032601/) [Concomitant]

REACTIONS (12)
  - BRONCHITIS [None]
  - DRUG HYPERSENSITIVITY [None]
  - DYSARTHRIA [None]
  - EXTRAVASATION [None]
  - FLUID RETENTION [None]
  - HYPOPHAGIA [None]
  - INFLUENZA LIKE ILLNESS [None]
  - INSOMNIA [None]
  - MEDICAL DEVICE COMPLICATION [None]
  - PANCREATIC DISORDER [None]
  - PNEUMONIA [None]
  - TENDERNESS [None]
